FAERS Safety Report 7645394-9 (Version None)
Quarter: 2011Q3

REPORT INFORMATION
  Report Type: 
  Country: None (occurrence: None)
  Receive Date: 20110729
  Receipt Date: 20110728
  Transmission Date: 20111222
  Serious: Yes (Other)
  Sender: FDA-Public Use
  Company Number: SG-BAYER-2011-066093

PATIENT
  Age: 64 Year
  Sex: Female

DRUGS (1)
  1. GLUCOBAY [Suspect]

REACTIONS (2)
  - NAUSEA [None]
  - VOMITING [None]
